FAERS Safety Report 4588405-X (Version None)
Quarter: 2005Q1

REPORT INFORMATION
  Report Type: 
  Country: None (occurrence: None)
  Receive Date: 20050216
  Receipt Date: 20050201
  Transmission Date: 20050727
  Serious: Yes (Other)
  Sender: FDA-Public Use
  Company Number: USA031255634

PATIENT
  Age: 59 Year
  Sex: Female
  Weight: 66 kg

DRUGS (3)
  1. FORTEO [Suspect]
     Indication: OSTEOPOROSIS
     Dosage: 20 UG/1 DAY
     Dates: start: 20031219, end: 20041209
  2. CALCIUM GLUCONATE [Concomitant]
  3. VITAMIN D [Concomitant]

REACTIONS (8)
  - ASTHMA [None]
  - BLOOD BLISTER [None]
  - C-REACTIVE PROTEIN INCREASED [None]
  - COUGH [None]
  - HYPERSENSITIVITY [None]
  - LUNG DISORDER [None]
  - RHINORRHOEA [None]
  - THYROID CYST [None]
